FAERS Safety Report 25461637 (Version 1)
Quarter: 2025Q2

REPORT INFORMATION
  Report Type: Spontaneous
  Country: JP (occurrence: JP)
  Receive Date: 20250620
  Receipt Date: 20250620
  Transmission Date: 20250717
  Serious: Yes (Other)
  Sender: EPIC PHARM
  Company Number: JP-EPICPHARMA-JP-2025EPCLIT00752

PATIENT
  Age: 8 Decade
  Sex: Female

DRUGS (8)
  1. PREGABALIN [Suspect]
     Active Substance: PREGABALIN
     Indication: Back pain
     Route: 065
  2. MIROGABALIN [Suspect]
     Active Substance: MIROGABALIN
     Indication: Scoliosis
     Route: 065
  3. DONEPEZIL [Concomitant]
     Active Substance: DONEPEZIL
     Indication: Dementia with Lewy bodies
     Route: 065
  4. DONEPEZIL [Concomitant]
     Active Substance: DONEPEZIL
     Route: 065
  5. HERBALS [Concomitant]
     Active Substance: HERBALS
     Indication: Psychotic disorder
     Route: 065
  6. OLANZAPINE [Concomitant]
     Active Substance: OLANZAPINE
     Indication: Psychotic disorder
     Route: 065
  7. QUETIAPINE [Concomitant]
     Active Substance: QUETIAPINE
     Indication: Insomnia
     Route: 065
  8. ACETAMINOPHEN [Concomitant]
     Active Substance: ACETAMINOPHEN
     Indication: Back pain
     Route: 065

REACTIONS (3)
  - Psychotic disorder [Recovered/Resolved]
  - Cognitive disorder [Recovered/Resolved]
  - Product use in unapproved indication [Unknown]
